FAERS Safety Report 4724298-5 (Version None)
Quarter: 2005Q3

REPORT INFORMATION
  Report Type: 
  Country: None (occurrence: None)
  Receive Date: 20050721
  Receipt Date: 20050721
  Transmission Date: 20060218
  Serious: Yes (Life-Threatening)
  Sender: FDA-Public Use
  Company Number: None

PATIENT
  Age: 60 Year
  Sex: Female

DRUGS (10)
  1. GATIFLOXACIN [Suspect]
     Indication: PNEUMONIA
     Dosage: 200     DAILY    INTRAVENOU
     Route: 042
     Dates: start: 20041111, end: 20041119
  2. GATIFLOXACIN [Suspect]
     Indication: SEPSIS
     Dosage: 200     DAILY    INTRAVENOU
     Route: 042
     Dates: start: 20041111, end: 20041119
  3. GATIFLOXACIN [Suspect]
     Indication: URINARY TRACT INFECTION
     Dosage: 200     DAILY    INTRAVENOU
     Route: 042
     Dates: start: 20041111, end: 20041119
  4. FLAGYL [Concomitant]
  5. SYNTHROID [Concomitant]
  6. SOLU-MEDROL [Concomitant]
  7. HEPARIN [Concomitant]
  8. RANITIDINE [Concomitant]
  9. ERITHROPOETINE [Concomitant]
  10. REGULAR INSULIN [Concomitant]

REACTIONS (1)
  - HYPOGLYCAEMIA [None]
